FAERS Safety Report 8033409-8 (Version None)
Quarter: 2012Q1

REPORT INFORMATION
  Report Type: 
  Country: None (occurrence: None)
  Receive Date: 20120110
  Receipt Date: 20120103
  Transmission Date: 20120608
  Serious: Yes (Death, Hospitalization)
  Sender: FDA-Public Use
  Company Number: PHEH2011US010802

PATIENT
  Sex: Female
  Weight: 68 kg

DRUGS (9)
  1. EXJADE [Suspect]
     Dosage: 625 MG, DAILY
     Route: 048
     Dates: start: 20110209, end: 20110729
  2. EXJADE [Suspect]
     Dosage: 750 MG, QD
     Route: 048
     Dates: start: 20110914
  3. OMEPRAZOLE [Concomitant]
     Indication: GASTROOESOPHAGEAL REFLUX DISEASE
     Dosage: 20 MG
     Dates: start: 20101221
  4. LEVOTHYROXINE SODIUM [Concomitant]
     Dosage: 25 MG
     Route: 048
     Dates: start: 20101231
  5. EXJADE [Suspect]
     Indication: IRON OVERLOAD
     Dosage: 625 MG, DAILY
     Route: 048
     Dates: start: 20101014, end: 20110209
  6. ARANESP [Concomitant]
     Indication: ANAEMIA
     Dosage: 300 MG, EVERY 2 WEEKS
     Route: 048
  7. PROPRANOLOL [Concomitant]
     Indication: PORTAL HYPERTENSION
     Dosage: 60 MG DAILY
     Route: 048
     Dates: start: 20101231
  8. GLIPIZIDE [Concomitant]
     Dosage: 5 MG
     Dates: start: 20101231
  9. JANUVIA [Concomitant]
     Indication: DIABETES MELLITUS
     Dosage: 50 MG, DAILY
     Route: 048

REACTIONS (4)
  - ABDOMINAL PAIN [None]
  - GASTROINTESTINAL NECROSIS [None]
  - PERITONITIS BACTERIAL [None]
  - HERNIA [None]
